FAERS Safety Report 8247944 (Version 2)
Quarter: 2012Q4

REPORT INFORMATION
  Report Type: 
  Country: US (occurrence: US)
  Receive Date: 20111116
  Receipt Date: 20121221
  Transmission Date: 20130627
  Serious: Yes (Life-Threatening, Other)
  Sender: FDA-Public Use
  Company Number: US-ASTRAZENECA-2010SE31596

PATIENT
  Age: 53 Year
  Sex: Female

DRUGS (22)
  1. NEXIUM [Suspect]
     Indication: GASTROOESOPHAGEAL REFLUX DISEASE
     Route: 048
  2. NEXIUM [Suspect]
     Indication: GASTROOESOPHAGEAL REFLUX DISEASE
     Route: 048
  3. OMEPRAZOLE [Suspect]
     Route: 048
  4. ZESTRIL [Suspect]
     Route: 048
  5. TUMS [Concomitant]
  6. METFORMIN [Concomitant]
  7. CYMBALTA [Concomitant]
     Route: 048
  8. CYMBALTA [Concomitant]
     Route: 048
  9. GLIMEPIRIDE [Concomitant]
     Route: 048
  10. HYDROCHLOROTHIAZIDE [Concomitant]
     Route: 048
  11. LIPITOR [Concomitant]
     Route: 048
  12. LORTAB [Concomitant]
     Indication: PAIN
     Dosage: 7.5/500, 1 TABLET 2 TIMES A DAY
     Route: 048
  13. LORTAB [Concomitant]
     Indication: PAIN
     Dosage: 7.5/500, 1 TABLET 2 TIMES A DAY
     Route: 048
  14. PROMETHAZINE [Concomitant]
     Indication: NAUSEA
     Dosage: TAKE 1 TABLET EVERY SIX HOURS AS NEEDED
     Route: 048
  15. PROMETHAZINE [Concomitant]
     Indication: VOMITING
     Dosage: TAKE 1 TABLET EVERY SIX HOURS AS NEEDED
     Route: 048
  16. ULTRACET [Concomitant]
     Indication: PAIN
     Dosage: 37.5 MG-325 MG TWO TIMES A DAY AS NEEDED
     Route: 048
  17. XANAX [Concomitant]
     Indication: ANXIETY
     Route: 048
  18. XANAX [Concomitant]
     Indication: ANXIETY
     Route: 048
  19. FEMHRT [Concomitant]
     Dosage: LOW DOSE TABLET
     Route: 048
  20. FLONASE [Concomitant]
     Dosage: 1-2 SPRAY NASAL DAILY
     Route: 055
  21. TYLENOL PM [Concomitant]
     Route: 048
  22. ZYRTEC [Concomitant]
     Route: 048

REACTIONS (24)
  - Bile duct obstruction [Unknown]
  - Cardiac failure congestive [Unknown]
  - Suicide attempt [Unknown]
  - Adrenal gland cancer [Unknown]
  - Chest pain [Unknown]
  - Cough [Unknown]
  - Diabetes mellitus [Unknown]
  - Gastritis [Unknown]
  - Dysphagia [Unknown]
  - Neck pain [Unknown]
  - Osteoarthritis [Unknown]
  - Muscle strain [Unknown]
  - Sleep disorder due to general medical condition, insomnia type [Unknown]
  - Constipation [Unknown]
  - Malaise [Unknown]
  - Back pain [Unknown]
  - Lumbar radiculopathy [Unknown]
  - Pain in extremity [Unknown]
  - Arthralgia [Unknown]
  - Arthralgia [Unknown]
  - Diarrhoea [Recovered/Resolved]
  - Headache [Unknown]
  - Vomiting [Recovered/Resolved]
  - Drug dose omission [Unknown]
